FAERS Safety Report 20055429 (Version 1)
Quarter: 2021Q4

REPORT INFORMATION
  Report Type: Other
  Country: US (occurrence: None)
  Receive Date: 20211110
  Receipt Date: 20211110
  Transmission Date: 20220304
  Serious: No
  Sender: FDA-Public Use
  Company Number: US-ROCHE-2748539

PATIENT
  Age: 21 Year
  Sex: Female

DRUGS (12)
  1. DORNASE ALFA [Suspect]
     Active Substance: DORNASE ALFA
     Indication: Cystic fibrosis
     Route: 065
  2. DEXAMETHASONE [Concomitant]
     Active Substance: DEXAMETHASONE
  3. AMOXICILLIN\CLAVULANATE POTASSIUM [Concomitant]
     Active Substance: AMOXICILLIN\CLAVULANATE POTASSIUM
  4. CEFEPIME [Concomitant]
     Active Substance: CEFEPIME HYDROCHLORIDE
  5. AZTREONAM [Concomitant]
     Active Substance: AZTREONAM
  6. ALBUTEROL [Concomitant]
     Active Substance: ALBUTEROL
  7. ACETYLCYSTEINE [Concomitant]
     Active Substance: ACETYLCYSTEINE
  8. BUPIVACAINE [Concomitant]
     Active Substance: BUPIVACAINE
  9. FENTANYL [Concomitant]
     Active Substance: FENTANYL
  10. PHENYLEPHRINE [Concomitant]
     Active Substance: PHENYLEPHRINE HYDROCHLORIDE
  11. CEFAZOLIN [Concomitant]
     Active Substance: CEFAZOLIN
     Route: 042
  12. PREDNISONE [Concomitant]
     Active Substance: PREDNISONE

REACTIONS (1)
  - Pregnancy [Unknown]
